FAERS Safety Report 8378339-7 (Version None)
Quarter: 2012Q2

REPORT INFORMATION
  Report Type: 
  Country: None (occurrence: None)
  Receive Date: 20120522
  Receipt Date: 20120521
  Transmission Date: 20120825
  Serious: Yes (Hospitalization, Other)
  Sender: FDA-Public Use
  Company Number: US-PFIZER INC-2006002022

PATIENT
  Sex: Female
  Weight: 61.224 kg

DRUGS (32)
  1. NASONEX [Concomitant]
  2. CALCIUM [Concomitant]
     Dosage: UNK
  3. ALBUTEROL [Concomitant]
     Indication: ASTHMA
     Dosage: TWO PUFFS AS NEEDED
  4. ULTRACET [Concomitant]
  5. CLINDAMYCIN [Concomitant]
     Dosage: AS AND WHEN REQUIRED
  6. LASIX [Concomitant]
  7. VITAMIN D [Concomitant]
     Indication: VITAMIN D DEFICIENCY
     Dosage: 5000 IU, AS NEEDED
     Route: 048
  8. PULMICORT [Concomitant]
     Indication: ASTHMA
     Dosage: UNK
  9. VITAMIN B-12 [Concomitant]
     Dosage: 500 MG, UNK
  10. VITAMIN B-12 [Concomitant]
     Dosage: UNK
  11. LOVAZA [Concomitant]
     Dosage: UNK
  12. PLAVIX [Concomitant]
     Indication: ANTICOAGULANT THERAPY
     Dosage: 75 MG, DAILY
  13. ONDANSETRON HYDROCHLORIDE [Concomitant]
     Indication: NAUSEA
     Dosage: 8 MG, AS NEEDED
  14. LYRICA [Suspect]
     Indication: NEURALGIA
     Dosage: 50 MG, 2X/DAY
     Route: 048
     Dates: start: 20100101
  15. ALENDRONATE SODIUM [Concomitant]
     Dosage: ONCE A MONTH
  16. PULMICORT [Concomitant]
     Dosage: 0.5 MG, AS NEEDED
  17. LOVAZA [Concomitant]
     Dosage: 1200 MG, UNK
  18. CITRACAL + D [Concomitant]
  19. EVISTA [Concomitant]
  20. EPINASTINE [Concomitant]
  21. ASCORBIC ACID [Concomitant]
     Dosage: UNK
  22. ZANTAC [Concomitant]
     Indication: GASTROOESOPHAGEAL REFLUX DISEASE
     Dosage: 75 MG, AS NEEDED
  23. LIPITOR [Suspect]
     Indication: BLOOD CHOLESTEROL INCREASED
     Dosage: 20 MG, 1X/DAY
     Route: 048
     Dates: start: 19910101
  24. DIOVAN HCT [Concomitant]
  25. XOPENEX [Concomitant]
     Dosage: AS AND WHEN REQUIRED
  26. ASCORBIC ACID [Concomitant]
     Dosage: 500 MG, UNK
  27. SINGULAIR [Concomitant]
     Indication: HYPERSENSITIVITY
     Dosage: 10 MG, AS NEEDED
  28. NEXIUM [Concomitant]
  29. DIOVAN [Concomitant]
  30. ALBUTEROL SULFATE [Concomitant]
     Indication: ASTHMA
     Dosage: 0.5 MG, AS NEEDED
  31. OXYCODONE [Concomitant]
     Indication: BACK DISORDER
     Dosage: 5 MG, UNK
  32. CENTRUM [Concomitant]
     Dosage: 600 MG, 2X/DAY

REACTIONS (27)
  - HYPERTENSION [None]
  - EPISTAXIS [None]
  - CHEST PAIN [None]
  - TRANSIENT ISCHAEMIC ATTACK [None]
  - HYPERSENSITIVITY [None]
  - NASOPHARYNGITIS [None]
  - HYPOAESTHESIA [None]
  - OSTEOPOROSIS [None]
  - CEREBROVASCULAR ACCIDENT [None]
  - BLOOD POTASSIUM DECREASED [None]
  - ASTHMA [None]
  - BODY HEIGHT DECREASED [None]
  - INJURY [None]
  - DEHYDRATION [None]
  - GASTRIC DISORDER [None]
  - DIZZINESS [None]
  - ARTHRITIS [None]
  - LIGAMENT RUPTURE [None]
  - ANAEMIA [None]
  - FOOD POISONING [None]
  - VOMITING [None]
  - NAUSEA [None]
  - FALL [None]
  - JOINT INJURY [None]
  - GLUCOSE TOLERANCE IMPAIRED [None]
  - VERTIGO [None]
  - FIBROMYALGIA [None]
